FAERS Safety Report 8821397 (Version 1)
Quarter: 2012Q4

REPORT INFORMATION
  Report Type: Report from Study
  Country: DE (occurrence: DE)
  Receive Date: 20121002
  Receipt Date: 20121002
  Transmission Date: 20130627
  Serious: Yes (Hospitalization)
  Sender: FDA-Public Use
  Company Number: DE-TEVA-362011USA

PATIENT
  Age: 60 None
  Sex: Male
  Weight: 54 kg

DRUGS (11)
  1. TREANDA [Suspect]
     Indication: B-CELL LYMPHOMA
     Route: 042
     Dates: start: 20110519
  2. TREANDA [Suspect]
     Route: 042
     Dates: start: 20111007
  3. RITUXIMAB [Suspect]
     Indication: B-CELL LYMPHOMA
     Route: 042
     Dates: start: 20110519
  4. RITUXIMAB [Suspect]
     Route: 042
     Dates: start: 20111006
  5. GATIFLOXACIN [Concomitant]
  6. VANCOMYCIN [Concomitant]
  7. CEFTRIAXONE [Concomitant]
  8. GANCICLOVIR [Concomitant]
  9. GENTAMYCIN [Concomitant]
  10. LINEZOLID [Concomitant]
  11. PANTOPRAZOLE [Concomitant]

REACTIONS (3)
  - Device related infection [Unknown]
  - Endocarditis bacterial [Recovered/Resolved]
  - Endocarditis [Unknown]
